FAERS Safety Report 24427055 (Version 4)
Quarter: 2024Q4

REPORT INFORMATION
  Report Type: Spontaneous
  Country: IT (occurrence: IT)
  Receive Date: 20241011
  Receipt Date: 20241212
  Transmission Date: 20250114
  Serious: Yes (Hospitalization, Disabling, Congenital Anomaly, Other)
  Sender: UCB
  Company Number: IT-UCBSA-2024051396

PATIENT
  Sex: Female
  Weight: 3.2 kg

DRUGS (4)
  1. CIMZIA [Suspect]
     Active Substance: CERTOLIZUMAB PEGOL
     Indication: Psoriasis
     Dosage: 200 MILLIGRAM, EV 2 WEEKS(QOW)
     Route: 064
     Dates: start: 20210301
  2. CIMZIA [Suspect]
     Active Substance: CERTOLIZUMAB PEGOL
     Dosage: 200 MILLIGRAM, EV 2 WEEKS(QOW)
     Route: 063
  3. FOLIC ACID [Concomitant]
     Active Substance: FOLIC ACID
     Indication: Product used for unknown indication
  4. VITAMINS NOS [Concomitant]
     Active Substance: VITAMINS
     Indication: Product used for unknown indication

REACTIONS (11)
  - Spina bifida [Not Recovered/Not Resolved]
  - Surgery [Unknown]
  - Hydrocephalus [Unknown]
  - Arnold-Chiari malformation [Not Recovered/Not Resolved]
  - Meningomyelocele [Unknown]
  - Talipes [Unknown]
  - Limb deformity [Unknown]
  - Kyphoscoliosis [Unknown]
  - Maternal exposure before pregnancy [Unknown]
  - Exposure via breast milk [Unknown]
  - Maternal exposure during pregnancy [Unknown]

NARRATIVE: CASE EVENT DATE: 20230101
